FAERS Safety Report 7756976-8 (Version None)
Quarter: 2011Q3

REPORT INFORMATION
  Report Type: 
  Country: None (occurrence: None)
  Receive Date: 20110916
  Receipt Date: 20110916
  Transmission Date: 20111222
  Serious: Yes (Death)
  Sender: FDA-Public Use
  Company Number: None

PATIENT
  Age: 52 Year
  Sex: Female
  Weight: 86.182 kg

DRUGS (1)
  1. MAGNESIUM [Suspect]
     Indication: INTRACRANIAL ANEURYSM
     Dosage: 20 GRAMS
     Route: 040
     Dates: start: 20100918, end: 20100922

REACTIONS (3)
  - DRUG PRESCRIBING ERROR [None]
  - OVERDOSE [None]
  - CARDIAC ARREST [None]
